FAERS Safety Report 4418169-1 (Version None)
Quarter: 2004Q3

REPORT INFORMATION
  Report Type: 
  Country: None (occurrence: None)
  Receive Date: 20040809
  Receipt Date: 20031217
  Transmission Date: 20050211
  Serious: No
  Sender: FDA-Public Use
  Company Number: US-GLAXOSMITHKLINE-A0443513A

PATIENT
  Age: 49 Year
  Sex: Female

DRUGS (4)
  1. PAXIL [Suspect]
     Indication: DEPRESSION
     Dosage: 12.5MG PER DAY
     Route: 048
  2. DIOVAN [Concomitant]
  3. VIOXX [Concomitant]
  4. ATIVAN [Concomitant]

REACTIONS (6)
  - ABNORMAL DREAMS [None]
  - ANORGASMIA [None]
  - DYSKINESIA [None]
  - FATIGUE [None]
  - FEELING ABNORMAL [None]
  - TONGUE BITING [None]
